FAERS Safety Report 25847115 (Version 2)
Quarter: 2025Q4

REPORT INFORMATION
  Report Type: Spontaneous
  Country: US (occurrence: US)
  Receive Date: 20250925
  Receipt Date: 20251014
  Transmission Date: 20260117
  Serious: Yes (Hospitalization)
  Sender: TEVA
  Company Number: US-TEVA-VS-3374112

PATIENT
  Age: 65 Year
  Sex: Female

DRUGS (4)
  1. CLOZAPINE [Suspect]
     Active Substance: CLOZAPINE
     Indication: Schizophrenia
     Dosage: RECEIVED IN THE MORNING
     Route: 065
  2. CLOZAPINE [Suspect]
     Active Substance: CLOZAPINE
     Indication: Schizophrenia
     Dosage: RECEIVED IN THE NIGHT
     Route: 065
  3. ZIPRASIDONE [Concomitant]
     Active Substance: ZIPRASIDONE
     Indication: Schizophrenia
     Route: 065
  4. OLANZAPINE [Suspect]
     Active Substance: OLANZAPINE
     Indication: Schizophrenia
     Dosage: AS NEEDED
     Route: 065

REACTIONS (7)
  - Gastrooesophageal reflux disease [Unknown]
  - Gastrointestinal hypomotility [Unknown]
  - Small intestinal obstruction [Unknown]
  - Hypotension [Unknown]
  - Anticholinergic effect [Unknown]
  - Ileus paralytic [Unknown]
  - Constipation [Unknown]
